FAERS Safety Report 4539573-7 (Version None)
Quarter: 2004Q4

REPORT INFORMATION
  Report Type: 
  Country: None (occurrence: None)
  Receive Date: 20041222
  Receipt Date: 20041209
  Transmission Date: 20050328
  Serious: Yes (Hospitalization)
  Sender: FDA-Public Use
  Company Number: GBR-2004-0001407

PATIENT
  Age: 77 Year
  Sex: Female
  Weight: 60 kg

DRUGS (6)
  1. HYDROMORPHONE HCL [Suspect]
     Indication: BONE PAIN
     Dosage: 4 MG, SINGLE, ORAL
     Route: 048
     Dates: start: 20040926, end: 20040926
  2. NOCTRAN 10 (CLORAZEPATE DIPOTASSIUM, ACEPROMETAZINE, ACEPROMAZINE) [Suspect]
     Dosage: 10 MG, DAILY, ORAL
     Route: 048
  3. DOTAREM (MEGLUMINE GADOTERATE) [Concomitant]
  4. ACETAMINOPHEN [Concomitant]
  5. TENORMIN [Concomitant]
  6. AMLODIPINE BESYLATE [Concomitant]

REACTIONS (6)
  - ACUTE PULMONARY OEDEMA [None]
  - EOSINOPHILIA [None]
  - PLEURAL EFFUSION [None]
  - PULMONARY INTERSTITIAL EMPHYSEMA SYNDROME [None]
  - PULMONARY OEDEMA [None]
  - RENAL FAILURE [None]
